FAERS Safety Report 13590355 (Version 3)
Quarter: 2018Q2

REPORT INFORMATION
  Report Type: Report from Study
  Country: IT (occurrence: IT)
  Receive Date: 20170529
  Receipt Date: 20180615
  Transmission Date: 20180711
  Serious: Yes (Other)
  Sender: FDA-Public Use
  Company Number: IT-ROCHE-1935230

PATIENT

DRUGS (6)
  1. OMBITASVIR/PARITAPREVIR/RITONAVIR [Suspect]
     Active Substance: OMBITASVIR\PARITAPREVIR\RITONAVIR
     Indication: HEPATITIS C
     Dosage: 25 MG/150 MG/100 MG
     Route: 048
  2. RIBAVIRIN. [Suspect]
     Active Substance: RIBAVIRIN
     Indication: HEPATITIS C
     Dosage: WEIGHT BASED DOSE
     Route: 048
  3. DASABUVIR [Suspect]
     Active Substance: DASABUVIR
     Indication: HEPATITIS C
     Route: 048
  4. DASABUVIR [Suspect]
     Active Substance: DASABUVIR
     Indication: HEPATIC CIRRHOSIS
  5. OMBITASVIR/PARITAPREVIR/RITONAVIR [Suspect]
     Active Substance: OMBITASVIR\PARITAPREVIR\RITONAVIR
     Indication: HEPATIC CIRRHOSIS
  6. RIBAVIRIN. [Suspect]
     Active Substance: RIBAVIRIN
     Indication: HEPATIC CIRRHOSIS

REACTIONS (44)
  - Bleeding varicose vein [Unknown]
  - Nausea [Unknown]
  - Tooth abscess [Unknown]
  - Epistaxis [Unknown]
  - Hypertension [Unknown]
  - Hyperhidrosis [Unknown]
  - Renal failure [Unknown]
  - Asthenia [Unknown]
  - Urinary tract infection [Unknown]
  - Anxiety [Unknown]
  - Blood bilirubin increased [Unknown]
  - Cardiovascular disorder [Unknown]
  - Atrial fibrillation [Unknown]
  - Diarrhoea [Unknown]
  - Palpitations [Unknown]
  - Tachycardia [Unknown]
  - Lichen planus [Unknown]
  - Anaemia [Unknown]
  - Hepatic failure [Unknown]
  - Hyperbilirubinaemia [Unknown]
  - Pruritus [Unknown]
  - Dizziness [Unknown]
  - Glomerular filtration rate decreased [Unknown]
  - Dermatitis [Unknown]
  - Abdominal pain upper [Unknown]
  - Decreased appetite [Unknown]
  - Herpes zoster [Unknown]
  - Hepatitis [Unknown]
  - Glossitis [Unknown]
  - Hypotension [Unknown]
  - Encephalopathy [Unknown]
  - Hypokalaemia [Unknown]
  - Dyspnoea [Unknown]
  - Ocular myasthenia [Unknown]
  - Rash [Unknown]
  - Metabolic disorder [Unknown]
  - Cough [Unknown]
  - Pneumonia [Unknown]
  - Ascites [Unknown]
  - Insomnia [Unknown]
  - Infection [Unknown]
  - Transient ischaemic attack [Unknown]
  - Musculoskeletal pain [Unknown]
  - Chest pain [Unknown]
